FAERS Safety Report 7425647-X (Version None)
Quarter: 2011Q2

REPORT INFORMATION
  Report Type: 
  Country: None (occurrence: None)
  Receive Date: 20110412
  Receipt Date: 20110328
  Transmission Date: 20111010
  Serious: Yes (Hospitalization)
  Sender: FDA-Public Use
  Company Number: 1000019866

PATIENT
  Age: 82 Year
  Sex: Female

DRUGS (8)
  1. FUROSEMIDE [Concomitant]
  2. PREVISCAN (FLUINDIONE) (TABLETS) (FLUINDIONE) [Concomitant]
  3. TAHOR (ATORVASTATIN CALCIUM) (TABLETS) (ATORVASTATIN CALCIUM) [Concomitant]
  4. LOXEN (NICARDIPINE HYDROCHLORIDE (CAPSULES) (NICARDIPINE HYDROCHLORIDE [Concomitant]
  5. RHINOTROPHYL (ETHANOLAMINE TENATE, FRAMYCETIN SULFATE) (ETHANOLAMINE T [Concomitant]
  6. ESCITALOPRAM [Suspect]
     Indication: DEPRESSION
     Dosage: 20 MG (20 MG,1 IN 1 D), ORAL
     Route: 048
     Dates: start: 20100210, end: 20100326
  7. NEXIUM [Suspect]
     Indication: GASTROOESOPHAGEAL REFLUX DISEASE
     Dosage: 20 MG (20 MG,1 IN 1 D), ORAL
     Route: 048
     Dates: end: 20100326
  8. CAPTOPRIL (CAPTOPRIL) (CAPTOPRIL) [Concomitant]

REACTIONS (3)
  - HALLUCINATION [None]
  - SEROTONIN SYNDROME [None]
  - DRUG INTERACTION [None]
